FAERS Safety Report 4400966-X (Version None)
Quarter: 2004Q3

REPORT INFORMATION
  Report Type: 
  Country: None (occurrence: None)
  Receive Date: 20040907
  Receipt Date: 20030828
  Transmission Date: 20050211
  Serious: No
  Sender: FDA-Public Use
  Company Number: US-BRISTOL-MYERS SQUIBB COMPANY-12368270

PATIENT
  Age: 71 Year
  Sex: Female
  Weight: 72 kg

DRUGS (9)
  1. COUMADIN [Suspect]
     Indication: MITRAL VALVE DISEASE
     Dosage: DOSAGE: 5MG DAILY ON WEEKENDS AND 2.5MG DAILY EVERY OTHER DAY ALTERNATING W/ 5 MG
     Route: 048
     Dates: start: 20030101
  2. PROTONIX [Concomitant]
  3. ENALAPRIL MALEATE [Concomitant]
  4. VASOTEC [Concomitant]
  5. FUROSEMIDE [Concomitant]
  6. ASPIRIN [Concomitant]
  7. KLOR-CON [Concomitant]
  8. LISINOPRIL [Concomitant]
  9. LOPRESSOR [Concomitant]
     Dates: end: 20030826

REACTIONS (1)
  - ALOPECIA [None]
